FAERS Safety Report 10908692 (Version 9)
Quarter: 2015Q3

REPORT INFORMATION
  Report Type: Report from Study
  Country: AU (occurrence: AU)
  Receive Date: 20150312
  Receipt Date: 20150706
  Transmission Date: 20151125
  Serious: Yes (Hospitalization)
  Sender: FDA-Public Use
  Company Number: AU-009507513-1503AUS003947

PATIENT
  Age: 57 Year
  Sex: Male
  Weight: 97 kg

DRUGS (13)
  1. IPILIMUMAB [Suspect]
     Active Substance: IPILIMUMAB
     Indication: MALIGNANT MELANOMA
     Dosage: UNK, Q3W
     Route: 042
     Dates: start: 20150121, end: 20150121
  2. PEMBROLIZUMAB. [Suspect]
     Active Substance: PEMBROLIZUMAB
     Indication: MALIGNANT MELANOMA
     Dosage: 2 MG/KG, Q3W
     Route: 042
     Dates: start: 20150121, end: 20150121
  3. ENDONE [Concomitant]
     Active Substance: OXYCODONE HYDROCHLORIDE
     Indication: GOUT
     Dosage: TOTAL DAILY DOSE 5 MG, PRN
     Route: 048
     Dates: start: 20150128, end: 20150201
  4. DIPROSONE O.V. [Concomitant]
     Indication: INFLAMMATION
     Dosage: TOTAL DAILY DOSE 1 TABLET (ALSO REPORTED AS CREAM), BID
     Route: 061
     Dates: start: 20150202
  5. PEMBROLIZUMAB. [Suspect]
     Active Substance: PEMBROLIZUMAB
     Dosage: 2 MG/KG, Q3W
     Route: 042
     Dates: start: 20150304
  6. NAPROXEN. [Concomitant]
     Active Substance: NAPROXEN
     Indication: GOUT
     Dosage: TOTAL DAILY DOSE: 500 MG, PRN
     Route: 048
     Dates: start: 20150131
  7. COLGOUT [Concomitant]
     Active Substance: COLCHICINE
     Indication: GOUT
     Dosage: TOTAL DAILY DOSE 500 MG, PRN
     Route: 048
     Dates: start: 199802
  8. PANADEINE FORTE [Concomitant]
     Active Substance: ACETAMINOPHEN\CODEINE PHOSPHATE
     Indication: GOUT
     Dosage: TOTAL DAILY DOSE 500 MG, PRN
     Route: 048
     Dates: start: 20150128, end: 20150201
  9. PEMBROLIZUMAB. [Suspect]
     Active Substance: PEMBROLIZUMAB
     Dosage: 2 MG/KG, Q3W
     Route: 042
     Dates: start: 20150211, end: 20150211
  10. IPILIMUMAB [Suspect]
     Active Substance: IPILIMUMAB
     Dosage: UNK, Q3W
     Route: 042
     Dates: start: 20150211, end: 20150211
  11. CLARATYNE [Concomitant]
     Active Substance: LORATADINE
     Indication: INFLAMMATION
     Dosage: 10 MG, QD
     Route: 048
     Dates: start: 20150202, end: 20150217
  12. IPILIMUMAB [Suspect]
     Active Substance: IPILIMUMAB
     Dosage: UNK, Q3W
     Route: 042
     Dates: start: 20150304, end: 20150304
  13. NAPROXEN. [Concomitant]
     Active Substance: NAPROXEN
     Indication: GOUT
     Dosage: 500 MG, BID
     Route: 048
     Dates: start: 20150128, end: 20150130

REACTIONS (1)
  - Deafness neurosensory [Recovering/Resolving]

NARRATIVE: CASE EVENT DATE: 20150213
